FAERS Safety Report 17400177 (Version 4)
Quarter: 2022Q3

REPORT INFORMATION
  Report Type: Report from Study
  Country: JP (occurrence: JP)
  Receive Date: 20200211
  Receipt Date: 20220712
  Transmission Date: 20221026
  Serious: Yes (Hospitalization)
  Sender: FDA-Public Use
  Company Number: JP-CHUGAI-C2020003669ROCHE

PATIENT
  Age: 70 Year
  Sex: Male
  Weight: 58.8 kg

DRUGS (7)
  1. ATEZOLIZUMAB [Suspect]
     Active Substance: ATEZOLIZUMAB
     Indication: Non-small cell lung cancer
     Dosage: IV INJECTION ONCE EVERY 3-4 WEEKS
     Route: 041
     Dates: start: 20190510, end: 20200128
  2. BEVACIZUMAB [Suspect]
     Active Substance: BEVACIZUMAB
     Indication: Non-small cell lung cancer
     Dosage: ONCE/3-4 WEEKS
     Route: 041
     Dates: start: 20190510, end: 20200128
  3. ALIMTA [Suspect]
     Active Substance: PEMETREXED DISODIUM
     Indication: Lung neoplasm malignant
     Dosage: ONCE/3-4 WEEKS
     Route: 041
     Dates: start: 20190510
  4. CARBOPLATIN [Suspect]
     Active Substance: CARBOPLATIN
     Indication: Lung neoplasm malignant
     Dosage: AUC5 FOR ONCE/3-4 WEEKS
     Route: 041
     Dates: start: 20190510
  5. HYDROXOCOBALAMIN [Concomitant]
     Active Substance: HYDROXOCOBALAMIN
     Indication: Premedication
     Route: 030
     Dates: start: 20190419, end: 20191224
  6. CALCIUM CARBONATE\CHOLECALCIFEROL\MAGNESIUM CARBONATE [Concomitant]
     Active Substance: CALCIUM CARBONATE\CHOLECALCIFEROL\MAGNESIUM CARBONATE
     Indication: Prophylaxis
     Route: 048
     Dates: start: 20190420
  7. DENOSUMAB [Concomitant]
     Active Substance: DENOSUMAB
     Indication: Lung neoplasm malignant
     Route: 042
     Dates: start: 20190419

REACTIONS (1)
  - Cerebral infarction [Recovering/Resolving]

NARRATIVE: CASE EVENT DATE: 20200128
